FAERS Safety Report 7632024-5 (Version None)
Quarter: 2011Q3

REPORT INFORMATION
  Report Type: 
  Country: None (occurrence: None)
  Receive Date: 20110725
  Receipt Date: 20100601
  Transmission Date: 20111222
  Serious: No
  Sender: FDA-Public Use
  Company Number: US-BRISTOL-MYERS SQUIBB COMPANY-15060841

PATIENT
  Age: 74 Year
  Sex: Female
  Weight: 69 kg

DRUGS (15)
  1. ALDACTONE [Concomitant]
  2. ALLOPURINOL [Concomitant]
  3. LASIX [Concomitant]
  4. TRICOR [Concomitant]
  5. WARFARIN SODIUM [Suspect]
     Indication: CEREBROVASCULAR ACCIDENT
     Dosage: DOSE INCREASED TO 10MG 4 TIMES A WEEK + 12MG 3TIMES WEEKLY 20OCT09-18JAN2010.TABLETS.
     Route: 048
     Dates: start: 20091027
  6. ASPIRIN [Concomitant]
  7. LOPRESSOR [Concomitant]
  8. NOVOLOG [Concomitant]
  9. LOVAZA [Concomitant]
  10. WARFARIN SODIUM [Suspect]
     Indication: ATRIAL FIBRILLATION
     Dosage: DOSE INCREASED TO 10MG 4 TIMES A WEEK + 12MG 3TIMES WEEKLY 20OCT09-18JAN2010.TABLETS.
     Route: 048
     Dates: start: 20091027
  11. LIPITOR [Concomitant]
  12. LANTUS [Concomitant]
  13. LISINOPRIL [Concomitant]
  14. POTASSIUM [Concomitant]
  15. LANOXIN [Concomitant]

REACTIONS (3)
  - DRUG INEFFECTIVE [None]
  - INTERNATIONAL NORMALISED RATIO DECREASED [None]
  - EPISTAXIS [None]
